FAERS Safety Report 8054829-1 (Version None)
Quarter: 2012Q1

REPORT INFORMATION
  Report Type: 
  Country: None (occurrence: None)
  Receive Date: 20120119
  Receipt Date: 20120115
  Transmission Date: 20120608
  Serious: No
  Sender: FDA-Public Use
  Company Number: US-PFIZER INC-2012011496

PATIENT
  Sex: Male
  Weight: 88.435 kg

DRUGS (2)
  1. PRISTIQ [Suspect]
     Indication: DEPRESSION
     Dosage: 100 MG, 1X/DAY
     Route: 048
     Dates: start: 20090101
  2. PRISTIQ [Suspect]
     Dosage: 50 MG, 1X/DAY
     Route: 048

REACTIONS (9)
  - WITHDRAWAL SYNDROME [None]
  - TINNITUS [None]
  - ABNORMAL DREAMS [None]
  - PARAESTHESIA [None]
  - CONFUSIONAL STATE [None]
  - HEADACHE [None]
  - FEELING ABNORMAL [None]
  - SENSORY DISTURBANCE [None]
  - ANXIETY [None]
